FAERS Safety Report 6802639-2 (Version None)
Quarter: 2010Q2

REPORT INFORMATION
  Report Type: 
  Country: None (occurrence: None)
  Receive Date: 20100628
  Receipt Date: 20100614
  Transmission Date: 20101027
  Serious: Yes (Other)
  Sender: FDA-Public Use
  Company Number: PHHY2010CA39116

PATIENT
  Sex: Female

DRUGS (4)
  1. ALISKIREN ALI+ [Suspect]
     Dosage: 150 MG, UNK
     Dates: end: 20100601
  2. BETA BLOCKING AGENTS [Concomitant]
  3. ACE INHIBITOR NOS [Concomitant]
  4. DIURETICS [Concomitant]

REACTIONS (2)
  - DIZZINESS [None]
  - HYPOTENSION [None]
